FAERS Safety Report 7969064-2 (Version None)
Quarter: 2011Q4

REPORT INFORMATION
  Report Type: 
  Country: None (occurrence: None)
  Receive Date: 20111208
  Receipt Date: 20111125
  Transmission Date: 20120403
  Serious: Yes (Hospitalization)
  Sender: FDA-Public Use
  Company Number: 2011AP001222

PATIENT
  Age: 43 Year
  Sex: Female

DRUGS (4)
  1. CITALOPRAM HYDROBROMIDE [Suspect]
     Indication: AGITATION
     Dosage: 10 MG
  2. CITALOPRAM HYDROBROMIDE [Suspect]
     Indication: DEPRESSION
     Dosage: 10 MG
  3. CANDESARTAN CILEXETIL [Concomitant]
  4. ACE INHIBITORS (ACE INHIBITORS) [Concomitant]

REACTIONS (4)
  - MALAISE [None]
  - ACUTE PSYCHOSIS [None]
  - AGITATION [None]
  - TOXICITY TO VARIOUS AGENTS [None]
